FAERS Safety Report 5216338-4 (Version None)
Quarter: 2006Q4

REPORT INFORMATION
  Report Type: 
  Country: None (occurrence: None)
  Receive Date: 20061122
  Receipt Date: 20060821
  Transmission Date: 20070319
  Serious: Yes (Hospitalization, Other)
  Sender: FDA-Public Use
  Company Number: 2006093834

PATIENT
  Age: 55 Year
  Sex: Male
  Weight: 150.1406 kg

DRUGS (7)
  1. LIPITOR [Suspect]
     Indication: CORONARY ARTERY DISEASE
     Dosage: 40 MG (40 MEQ, 1 IN 1 D), ORAL
     Route: 048
  2. HYZAAR [Concomitant]
  3. PREVACID [Concomitant]
  4. NIACIN [Concomitant]
  5. ASPIRIN [Concomitant]
  6. NASALCROM [Concomitant]
  7. MULTIVITAMIN [Concomitant]

REACTIONS (2)
  - BLOOD CREATINE PHOSPHOKINASE INCREASED [None]
  - CHEST PAIN [None]
